FAERS Safety Report 14264275 (Version 3)
Quarter: 2018Q1

REPORT INFORMATION
  Report Type: Spontaneous
  Country: JP (occurrence: JP)
  Receive Date: 20171208
  Receipt Date: 20180131
  Transmission Date: 20180508
  Serious: Yes (Death, Other)
  Sender: FDA-Public Use
  Company Number: JP-GE HEALTHCARE LIFE SCIENCES-2017CSU004008

PATIENT

DRUGS (6)
  1. CALONAL [Concomitant]
     Active Substance: ACETAMINOPHEN
     Indication: PYREXIA
     Dosage: 400MG/DAY
     Route: 048
     Dates: start: 20171115
  2. VESICARE [Concomitant]
     Active Substance: SOLIFENACIN SUCCINATE
     Dosage: UNK
     Route: 048
  3. OMNIPAQUE [Suspect]
     Active Substance: IOHEXOL
     Indication: COMPUTERISED TOMOGRAM
     Dosage: UNK
     Route: 042
     Dates: start: 20171117, end: 20171117
  4. OMNIPAQUE [Suspect]
     Active Substance: IOHEXOL
     Indication: PYREXIA
     Dosage: UNK UNK, SINGLE
     Route: 042
     Dates: start: 20171117, end: 20171117
  5. METHYCOBAL [Concomitant]
     Active Substance: METHYLCOBALAMIN
     Dosage: UNK
     Route: 048
  6. LEVOFLOXACIN. [Concomitant]
     Active Substance: LEVOFLOXACIN
     Indication: PYREXIA
     Dosage: UNK
     Dates: start: 20171106

REACTIONS (5)
  - Feeling abnormal [Not Recovered/Not Resolved]
  - Acute respiratory distress syndrome [Fatal]
  - Cardiac arrest [Fatal]
  - Depressed level of consciousness [Not Recovered/Not Resolved]
  - Chills [Not Recovered/Not Resolved]

NARRATIVE: CASE EVENT DATE: 20171117
